FAERS Safety Report 7659207-2 (Version None)
Quarter: 2011Q3

REPORT INFORMATION
  Report Type: 
  Country: None (occurrence: None)
  Receive Date: 20110805
  Receipt Date: 20110726
  Transmission Date: 20111222
  Serious: Yes (Other)
  Sender: FDA-Public Use
  Company Number: FR-PFIZER INC-2011170906

PATIENT
  Age: 52 Year
  Sex: Female

DRUGS (4)
  1. CERUBIDINE [Suspect]
     Indication: ACUTE LEUKAEMIA
     Dosage: 100 MG, 1X/DAY
     Route: 042
     Dates: start: 20080911, end: 20081001
  2. GEMTUZUMAB OZOGAMICIN [Suspect]
     Indication: ACUTE LEUKAEMIA
     Dosage: 10 MG, 1X/DAY
     Route: 042
     Dates: start: 20080904, end: 20080904
  3. OLICLINOMEL [Suspect]
     Dosage: 1.5 L, 1X/DAY
     Route: 042
     Dates: start: 20080911, end: 20081001
  4. CYTARABINE [Suspect]
     Indication: ACUTE MYELOID LEUKAEMIA
     Dosage: 334 MG, 1X/DAY
     Route: 042
     Dates: start: 20080904, end: 20080911

REACTIONS (1)
  - CYTOLYTIC HEPATITIS [None]
